FAERS Safety Report 4681262-2 (Version None)
Quarter: 2005Q2

REPORT INFORMATION
  Report Type: 
  Country: None (occurrence: None)
  Receive Date: 20050603
  Receipt Date: 20050524
  Transmission Date: 20051028
  Serious: Yes (Death)
  Sender: FDA-Public Use
  Company Number: CA-JNJFOC-20050406539

PATIENT
  Sex: Female
  Weight: 44 kg

DRUGS (7)
  1. CAELYX [Suspect]
     Indication: OVARIAN CANCER
     Route: 042
  2. MAGNESIUM [Concomitant]
     Route: 042
  3. PROCHLORPERAZINE [Concomitant]
     Indication: PREMEDICATION
     Route: 049
  4. DURAGESIC-100 [Concomitant]
     Route: 062
  5. DILAUDID [Concomitant]
     Route: 049
  6. DECADRON [Concomitant]
     Indication: PREMEDICATION
     Route: 042
  7. BENADRYL [Concomitant]
     Route: 042

REACTIONS (7)
  - ABDOMINAL PAIN [None]
  - ANAL DISCOMFORT [None]
  - FLATULENCE [None]
  - INTESTINAL FISTULA [None]
  - MALIGNANT NEOPLASM PROGRESSION [None]
  - NAUSEA [None]
  - OVARIAN CANCER [None]
